FAERS Safety Report 20834462 (Version 1)
Quarter: 2022Q2

REPORT INFORMATION
  Report Type: Spontaneous
  Country: US (occurrence: US)
  Receive Date: 20220516
  Receipt Date: 20220516
  Transmission Date: 20220721
  Serious: No
  Sender: FDA-Public Use
  Company Number: US-PFIZER INC-202200677324

PATIENT
  Age: 54 Year
  Sex: Male
  Weight: 109.77 kg

DRUGS (3)
  1. ACCUPRIL [Suspect]
     Active Substance: QUINAPRIL HYDROCHLORIDE
     Indication: Blood pressure abnormal
     Dosage: 40 MG, 1X/DAY (90 DAY SUPPLY)
  2. ACCUPRIL [Suspect]
     Active Substance: QUINAPRIL HYDROCHLORIDE
     Indication: Hypertension
  3. LORATADINE [Concomitant]
     Active Substance: LORATADINE
     Indication: Hypersensitivity
     Dosage: UNK

REACTIONS (2)
  - Recalled product administered [Unknown]
  - Headache [Unknown]
